FAERS Safety Report 9556818 (Version 1)
Quarter: 2013Q3

REPORT INFORMATION
  Report Type: Spontaneous
  Country: FI (occurrence: FI)
  Receive Date: 20130926
  Receipt Date: 20130926
  Transmission Date: 20140515
  Serious: Yes (Disabling)
  Sender: FDA-Public Use
  Company Number: FI-PFIZER INC-2013273208

PATIENT
  Age: 29 Year
  Sex: Male

DRUGS (1)
  1. CHAMPIX [Suspect]
     Indication: SMOKING CESSATION THERAPY
     Dosage: 2 PER DAY
     Dates: start: 20111001, end: 20111201

REACTIONS (7)
  - Personality change [Unknown]
  - Anxiety [Unknown]
  - Stress [Unknown]
  - Personality disorder [Unknown]
  - Burnout syndrome [Unknown]
  - Fatigue [Unknown]
  - Type 2 diabetes mellitus [Unknown]
